FAERS Safety Report 19479382 (Version 1)
Quarter: 2021Q3

REPORT INFORMATION
  Report Type: Spontaneous
  Country: CA (occurrence: CA)
  Receive Date: 20210701
  Receipt Date: 20210701
  Transmission Date: 20211014
  Serious: Yes (Other)
  Sender: FDA-Public Use
  Company Number: CA-SAMSUNG BIOEPIS-SB-2021-15584

PATIENT
  Age: 51 Year
  Sex: Male
  Weight: 145 kg

DRUGS (2)
  1. INFLIXIMAB [Suspect]
     Active Substance: INFLIXIMAB
     Indication: PSORIASIS
     Route: 042
  2. RAMIPRIL. [Concomitant]
     Active Substance: RAMIPRIL
     Indication: HYPERTENSION
     Dosage: UNKNOWN
     Route: 065

REACTIONS (10)
  - Anxiety [Unknown]
  - Off label use [Unknown]
  - Fatigue [Unknown]
  - Arthritis [Unknown]
  - Cellulitis [Unknown]
  - Loss of personal independence in daily activities [Unknown]
  - Pain [Unknown]
  - Hypertension [Unknown]
  - Sleep disorder [Unknown]
  - Intentional product use issue [Unknown]
